FAERS Safety Report 6634409-2 (Version None)
Quarter: 2010Q1

REPORT INFORMATION
  Report Type: 
  Country: None (occurrence: None)
  Receive Date: 20100225
  Receipt Date: 20081202
  Transmission Date: 20100710
  Serious: Yes (Other)
  Sender: FDA-Public Use
  Company Number: US-JNJFOC-20081003186

PATIENT
  Age: 64 Year
  Sex: Male
  Weight: 79.3795 kg

DRUGS (5)
  1. IBUPROFEN 600 MG (IBUPROFEN) UNSPECIFIED [Suspect]
     Indication: DRUG THERAPY
     Dosage: 600 MG, 1 IN 1 DAY, ORAL
     Route: 048
     Dates: start: 20080926, end: 20081003
  2. IBUPROFEN 600 MG (IBUPROFEN) UNSPECIFIED [Suspect]
     Indication: GINGIVITIS
     Dosage: 600 MG, 1 IN 1 DAY, ORAL
     Route: 048
     Dates: start: 20080926, end: 20081003
  3. LIPITOR [Suspect]
     Indication: BLOOD CHOLESTEROL INCREASED
     Dosage: 10 MG, 1 IN 1 DAY, ORAL
     Route: 048
     Dates: start: 20080320
  4. PROPOXYPHENE/APAP (DOXYPHENE) [Suspect]
     Indication: GINGIVITIS
     Dosage: TOOK 100/650MG ONCE A DAY
     Dates: start: 20080926, end: 20081003
  5. ASPIRIN [Concomitant]

REACTIONS (3)
  - ALANINE AMINOTRANSFERASE INCREASED [None]
  - ASPARTATE AMINOTRANSFERASE INCREASED [None]
  - BLOOD ALKALINE PHOSPHATASE INCREASED [None]
